FAERS Safety Report 8086460-6 (Version None)
Quarter: 2012Q1

REPORT INFORMATION
  Report Type: 
  Country: None (occurrence: None)
  Receive Date: 20120128
  Receipt Date: 20110512
  Transmission Date: 20120608
  Serious: No
  Sender: FDA-Public Use
  Company Number: US-ABBOTT-11P-163-0724839-00

PATIENT
  Sex: Female
  Weight: 72.186 kg

DRUGS (7)
  1. VITAMIN D [Concomitant]
     Indication: PRODUCT USED FOR UNKNOWN INDICATION
  2. ORACEA [Concomitant]
     Indication: ROSACEA
  3. MULTI-VITAMIN [Concomitant]
     Indication: PRODUCT USED FOR UNKNOWN INDICATION
  4. HUMIRA [Suspect]
     Indication: PSORIASIS
     Dates: start: 20090101, end: 20090101
  5. NEXIUM [Concomitant]
     Indication: PRODUCT USED FOR UNKNOWN INDICATION
  6. FEMARA [Concomitant]
     Indication: BREAST CANCER
  7. HUMIRA [Suspect]
     Dates: start: 20110301, end: 20110422

REACTIONS (4)
  - URINE ODOUR ABNORMAL [None]
  - ABDOMINAL PAIN [None]
  - URINARY TRACT INFECTION [None]
  - PYREXIA [None]
